FAERS Safety Report 9772923 (Version 1)
Quarter: 2013Q4

REPORT INFORMATION
  Report Type: Spontaneous
  Country: US (occurrence: US)
  Receive Date: 20131219
  Receipt Date: 20131219
  Transmission Date: 20140711
  Serious: Yes (Other)
  Sender: FDA-Public Use
  Company Number: US-PFIZER INC-2013359351

PATIENT
  Age: 58 Year
  Sex: Male

DRUGS (2)
  1. VIAGRA [Suspect]
     Indication: SEXUAL DYSFUNCTION
     Dosage: 50 MG, UNK
     Dates: start: 2012
  2. METHIMAZOLE [Concomitant]
     Indication: THYROID DISORDER
     Dosage: 20 MG, DAILY

REACTIONS (3)
  - White blood cell count decreased [Unknown]
  - Pre-existing condition improved [Unknown]
  - Therapeutic response unexpected [Unknown]
